FAERS Safety Report 6523678-5 (Version None)
Quarter: 2009Q4

REPORT INFORMATION
  Report Type: 
  Country: None (occurrence: None)
  Receive Date: 20091231
  Receipt Date: 20091202
  Transmission Date: 20100525
  Serious: Yes (Hospitalization, Other)
  Sender: FDA-Public Use
  Company Number: JP-NOVOPROD-300463

PATIENT
  Age: 64 Year
  Sex: Male
  Weight: 66 kg

DRUGS (21)
  1. NOVORAPID CHU PENFILL [Suspect]
     Indication: TYPE 2 DIABETES MELLITUS
     Dosage: 34 IU, QD
     Route: 058
     Dates: start: 20090829, end: 20091118
  2. NOVORAPID CHU PENFILL [Suspect]
     Dosage: 10 IU, QD
     Dates: start: 20090929
  3. NOVORAPID CHU PENFILL [Suspect]
     Dosage: 10IU IN THE MORNING 10IU IN THE EVENING
     Dates: start: 20091004
  4. NOVORAPID CHU PENFILL [Suspect]
     Dosage: 12IU IN THE MORNING 12IU IN THE EVENING
     Dates: start: 20091018
  5. LEVEMIR CHU PENFILL [Suspect]
     Indication: TYPE 2 DIABETES MELLITUS
     Dosage: 40- 60 IU, QD
     Dates: start: 20090801
  6. LEVEMIR CHU PENFILL [Suspect]
     Dosage: 30 IU IN THE MORNING AND 16 IU IN THE EVENING
     Dates: start: 20090201
  7. LEVEMIR CHU PENFILL [Suspect]
     Dosage: 30 IU IN THE MORNING AND 22 IU IN THE EVENING
     Dates: start: 20090915
  8. LEVEMIR CHU PENFILL [Suspect]
     Dosage: 30 IU IN THE MORNING AND 22 IU IN THE EVENING
     Dates: start: 20090916
  9. LEVEMIR CHU PENFILL [Suspect]
     Dosage: 35 IU IN THE MORNING AND 22 IU IN THE EVENING
     Dates: start: 20090919
  10. LEVEMIR CHU PENFILL [Suspect]
     Dosage: 40 IU IN THE MORNING AND 20 IU IN THE EVENING
     Dates: start: 20090924, end: 20091026
  11. LEVEMIR CHU PENFILL [Suspect]
     Dosage: UNK
  12. GLIMEPIDE [Concomitant]
     Indication: TYPE 2 DIABETES MELLITUS
     Dosage: 2 MG, UNK
     Route: 048
  13. HUMALOG MIX                        /01293501/ [Concomitant]
     Dosage: 60 U, QD
     Route: 058
     Dates: end: 20090802
  14. ARTIST [Concomitant]
     Indication: ATRIAL FIBRILLATION
     Dosage: 5 MG, UNK
     Route: 048
  15. ALDACTONE [Concomitant]
     Indication: ATRIAL FIBRILLATION
     Dosage: 25 MG, UNK
     Route: 048
  16. WARFARIN [Concomitant]
     Indication: ATRIAL FIBRILLATION
     Dosage: 2.5 MG, QD
     Route: 048
  17. AMARYL [Concomitant]
     Indication: TYPE 2 DIABETES MELLITUS
     Dosage: 4 MG, QD
     Route: 048
  18. NELBIS [Concomitant]
     Indication: TYPE 2 DIABETES MELLITUS
     Dosage: 500 MG, QD
     Route: 048
  19. D ALFA [Concomitant]
     Indication: OSTEOPOROSIS
     Dosage: 1 UG, QD
     Route: 048
  20. APIDRA [Concomitant]
     Dosage: UNK
     Dates: start: 20091119
  21. LANTUS [Concomitant]
     Dosage: UNK
     Dates: start: 20091113

REACTIONS (3)
  - ANTI-INSULIN ANTIBODY INCREASED [None]
  - BLOOD GLUCOSE INCREASED [None]
  - URTICARIA [None]
